FAERS Safety Report 5121826-5 (Version None)
Quarter: 2006Q4

REPORT INFORMATION
  Report Type: 
  Country: None (occurrence: None)
  Receive Date: 20061003
  Receipt Date: 20060925
  Transmission Date: 20070319
  Serious: Yes (Hospitalization)
  Sender: FDA-Public Use
  Company Number: GXKR2006GB05915

PATIENT
  Sex: Female

DRUGS (7)
  1. ACETYSALICYLIC ACID [Suspect]
     Indication: TRANSIENT ISCHAEMIC ATTACK
     Dosage: 75 MG, QD, ORAL
     Route: 048
     Dates: end: 20060906
  2. MELOXICAM       (MELOXICAM) [Suspect]
     Indication: OSTEOARTHRITIS
     Dosage: 15 MG, QD, ORAL
     Route: 048
     Dates: start: 20060601, end: 20060906
  3. BENDROFLUMETHIAZIDE [Concomitant]
  4. CO-CODAMOL                     (CODEINE PHOSPHATE, PARACETAMOL) [Concomitant]
  5. LATANOPROST [Concomitant]
  6. LEVOTHYROXINE SODIUM [Concomitant]
  7. OMEPRAZOLE [Concomitant]

REACTIONS (3)
  - BLOOD UREA INCREASED [None]
  - GASTROINTESTINAL HAEMORRHAGE [None]
  - HAEMOGLOBIN DECREASED [None]
